FAERS Safety Report 6222193-6 (Version None)
Quarter: 2009Q2

REPORT INFORMATION
  Report Type: 
  Country: None (occurrence: None)
  Receive Date: 20090611
  Receipt Date: 20090604
  Transmission Date: 20091009
  Serious: Yes (Hospitalization)
  Sender: FDA-Public Use
  Company Number: US-PFIZER INC-2009201292

PATIENT
  Sex: Female
  Weight: 64.853 kg

DRUGS (21)
  1. SUNITINIB MALATE [Suspect]
     Indication: METASTATIC RENAL CELL CARCINOMA
     Dosage: 50 MG, 1X/DAY
     Route: 048
     Dates: start: 20080407
  2. VACCINIUM MACROCARPON [Concomitant]
     Dosage: 2X/DAY
     Route: 048
     Dates: start: 20020101
  3. LOVAZA [Concomitant]
     Dosage: DAILY
     Route: 048
     Dates: start: 20040101
  4. OS-CAL [Concomitant]
     Dosage: 250 MG, 2X/DAY
     Route: 048
     Dates: start: 20020101
  5. RED YEAST RICE [Concomitant]
     Dosage: 2X/DAY
     Route: 048
     Dates: start: 20050101
  6. TENORETIC 100 [Concomitant]
     Dosage: 50 MG, 1X/DAY
     Route: 048
     Dates: start: 20020101
  7. COMPAZINE [Concomitant]
     Dosage: 10 MG, Q6 PRN
     Route: 048
     Dates: start: 20080407
  8. IMODIUM [Concomitant]
     Dosage: 2 MG, Q4 PRN
     Route: 048
     Dates: start: 20080407
  9. TUMS [Concomitant]
     Dosage: UNK
     Route: 048
     Dates: start: 20080101
  10. DARBEPOETIN ALFA [Concomitant]
     Dosage: AS  NEEDED
     Dates: start: 20080507
  11. FILGRASTIM [Concomitant]
     Dosage: AS NEEDED
     Dates: start: 20080507
  12. ATENOLOL [Concomitant]
     Dosage: 50 MG, 1X/DAY
     Route: 048
     Dates: start: 20090208, end: 20090210
  13. PROTONIX [Concomitant]
     Indication: GASTROENTERITIS
     Dosage: 40 MG, EVERY 24 HOURS
     Route: 042
     Dates: start: 20090207, end: 20090209
  14. REGLAN [Concomitant]
     Indication: NAUSEA
     Dosage: 10 MG, EVERY 6 HOURS
     Route: 042
     Dates: start: 20090207, end: 20090208
  15. LASIX [Concomitant]
     Dosage: 20 MG, UNK
     Route: 042
     Dates: start: 20090208, end: 20090208
  16. ACETAMINOPHEN AND HYDROCODONE BITARTRATE [Concomitant]
     Dosage: 5/500 MG  1Q4 PRN
     Route: 048
     Dates: start: 20080206, end: 20080501
  17. BACITRACIN [Concomitant]
     Dosage: UNK
  18. ZOFRAN [Concomitant]
     Dosage: UNK
  19. XANAX [Concomitant]
     Dosage: UNK
  20. BENADRYL [Concomitant]
     Dosage: UNK
  21. TYLENOL (CAPLET) [Concomitant]
     Dosage: UNK

REACTIONS (3)
  - GASTROINTESTINAL HAEMORRHAGE [None]
  - PULMONARY EMBOLISM [None]
  - SHOCK [None]
